FAERS Safety Report 18375899 (Version 9)
Quarter: 2021Q3

REPORT INFORMATION
  Report Type: Report from Study
  Country: US (occurrence: US)
  Receive Date: 20201013
  Receipt Date: 20210827
  Transmission Date: 20211014
  Serious: Yes (Other)
  Sender: FDA-Public Use
  Company Number: NVSC2020US268403

PATIENT
  Age: 57 Year
  Sex: Male

DRUGS (3)
  1. COSENTYX [Suspect]
     Active Substance: SECUKINUMAB
     Dosage: 300 MG, UNKNOWN
     Route: 061
  2. COSENTYX [Suspect]
     Active Substance: SECUKINUMAB
     Dosage: 150 UNK, QMO (MG/ML, INJECTED 2 PENS)
     Route: 058
     Dates: start: 2016
  3. COSENTYX [Suspect]
     Active Substance: SECUKINUMAB
     Indication: PSORIASIS
     Dosage: 300 MG, QMO
     Route: 058

REACTIONS (8)
  - Actinic keratosis [Unknown]
  - Squamous cell carcinoma [Recovered/Resolved]
  - Rash pruritic [Recovering/Resolving]
  - Rash macular [Recovering/Resolving]
  - Skin lesion [Not Recovered/Not Resolved]
  - Pneumonia [Recovered/Resolved]
  - Incorrect route of product administration [Unknown]
  - SARS-CoV-2 test positive [Recovered/Resolved]

NARRATIVE: CASE EVENT DATE: 20200930
